FAERS Safety Report 9770885 (Version 2)
Quarter: 2013Q4

REPORT INFORMATION
  Report Type: Spontaneous
  Country: US (occurrence: US)
  Receive Date: 20131218
  Receipt Date: 20131218
  Transmission Date: 20140711
  Serious: No
  Sender: FDA-Public Use
  Company Number: US-MYLANLABS-2012S1026402

PATIENT
  Sex: Male

DRUGS (1)
  1. FLUVOXAMINE MALEATE TABLETS [Suspect]
     Indication: OBSESSIVE-COMPULSIVE DISORDER
     Route: 048

REACTIONS (4)
  - Ocular icterus [Not Recovered/Not Resolved]
  - Weight increased [Not Recovered/Not Resolved]
  - Rash generalised [Not Recovered/Not Resolved]
  - Chromaturia [Not Recovered/Not Resolved]
